FAERS Safety Report 15558512 (Version 1)
Quarter: 2018Q4

REPORT INFORMATION
  Report Type: Spontaneous
  Country: US (occurrence: US)
  Receive Date: 20181026
  Receipt Date: 20181026
  Transmission Date: 20190205
  Serious: Yes (Life-Threatening, Other)
  Sender: FDA-Public Use
  Company Number: None

PATIENT
  Age: 65 Year
  Sex: Male
  Weight: 99 kg

DRUGS (9)
  1. LOVAZA [Concomitant]
     Active Substance: OMEGA-3-ACID ETHYL ESTERS
  2. GLIPIZIDE. [Concomitant]
     Active Substance: GLIPIZIDE
  3. ATORVASTATIN [Concomitant]
     Active Substance: ATORVASTATIN
  4. MODAFINIL TABLETS, USP [Suspect]
     Active Substance: MODAFINIL
     Indication: NARCOLEPSY
     Dosage: ?          QUANTITY:90 TABLET(S);?
     Route: 048
  5. CIALIS [Concomitant]
     Active Substance: TADALAFIL
  6. METFORMIN [Concomitant]
     Active Substance: METFORMIN HYDROCHLORIDE
  7. TRADJENTA [Concomitant]
     Active Substance: LINAGLIPTIN
  8. TAMSULOSIN [Concomitant]
     Active Substance: TAMSULOSIN
  9. LISINOPRIL. [Concomitant]
     Active Substance: LISINOPRIL

REACTIONS (2)
  - Drug ineffective [None]
  - Product substitution issue [None]

NARRATIVE: CASE EVENT DATE: 20181014
